FAERS Safety Report 16358351 (Version 2)
Quarter: 2019Q2

REPORT INFORMATION
  Report Type: Spontaneous
  Country: SI (occurrence: SI)
  Receive Date: 20190527
  Receipt Date: 20190621
  Transmission Date: 20190711
  Serious: Yes (Other)
  Sender: FDA-Public Use
  Company Number: SI-PFIZER INC-2019215889

PATIENT
  Age: 76 Year
  Sex: Female

DRUGS (5)
  1. CALCIUM CARBONATE. [Suspect]
     Active Substance: CALCIUM CARBONATE
     Indication: OSTEOPOROSIS PROPHYLAXIS
     Dosage: 1 G, DAILY
  2. IBANDRONATE [Suspect]
     Active Substance: IBANDRONATE SODIUM
     Indication: OSTEOPOROSIS PROPHYLAXIS
     Dosage: 150 MG, MONTHLY
  3. METHYLPREDNISOLONE. [Suspect]
     Active Substance: METHYLPREDNISOLONE
     Indication: POLYMYALGIA RHEUMATICA
     Dosage: 16 MG, DAILY FOR FIRST 3 WEEKS, LATER GRADUALLY LOWER DOSES
     Route: 048
     Dates: start: 2013
  4. METHYLPREDNISOLONE. [Suspect]
     Active Substance: METHYLPREDNISOLONE
     Dosage: UNK, DAILY (FOR 7 MONTHS PER OS DAILY AT DAILY DOSES HIGHER THAN 4 MG)
     Route: 048
  5. ALFACALCIDOL [Suspect]
     Active Substance: ALFACALCIDOL
     Indication: OSTEOPOROSIS PROPHYLAXIS
     Dosage: 0.5 UG, 1X/DAY

REACTIONS (1)
  - Osteoporotic fracture [Unknown]

NARRATIVE: CASE EVENT DATE: 201710
